FAERS Safety Report 7267411-0 (Version None)
Quarter: 2011Q1

REPORT INFORMATION
  Report Type: 
  Country: None (occurrence: None)
  Receive Date: 20110201
  Receipt Date: 20101129
  Transmission Date: 20110831
  Serious: No
  Sender: FDA-Public Use
  Company Number: A0896706A

PATIENT
  Age: 90 Year
  Sex: Female

DRUGS (3)
  1. METOPROLOL [Concomitant]
  2. ARIXTRA [Suspect]
     Dosage: 7.5MG PER DAY
     Route: 058
     Dates: start: 20100401
  3. NORVASC [Concomitant]

REACTIONS (1)
  - INJECTION SITE HAEMATOMA [None]
